FAERS Safety Report 9421134 (Version 1)
Quarter: 2013Q3

REPORT INFORMATION
  Report Type: Spontaneous
  Country: BR (occurrence: BR)
  Receive Date: 20130725
  Receipt Date: 20130725
  Transmission Date: 20140515
  Serious: Yes (Other)
  Sender: FDA-Public Use
  Company Number: PHHY2013BR077024

PATIENT
  Sex: Male
  Weight: 85 kg

DRUGS (2)
  1. APRESOLIN [Suspect]
     Indication: HYPERTENSION
     Dosage: 3 DF (50MG), DAILY
     Route: 048
  2. ATENOLOL [Suspect]

REACTIONS (1)
  - Asthma [Recovering/Resolving]
